FAERS Safety Report 12139976 (Version 1)
Quarter: 2016Q1

REPORT INFORMATION
  Report Type: Report from Study
  Country: NL (occurrence: NL)
  Receive Date: 20160303
  Receipt Date: 20160303
  Transmission Date: 20160526
  Serious: Yes (Hospitalization)
  Sender: FDA-Public Use
  Company Number: NL-TEVA-639070ISR

PATIENT
  Age: 53 Year
  Sex: Female

DRUGS (4)
  1. MYOCET [Suspect]
     Active Substance: DOXORUBICIN
     Dosage: 0 MILLIGRAM DAILY;
     Route: 042
  2. BEVACIZUMAB [Suspect]
     Active Substance: BEVACIZUMAB
     Indication: BREAST CANCER
     Dosage: 775 MILLIGRAM DAILY;
     Route: 042
     Dates: start: 20151028, end: 20160203
  3. AMOXICILLIN. [Suspect]
     Active Substance: AMOXICILLIN
     Route: 065
     Dates: start: 20160204
  4. PACLITAXEL. [Suspect]
     Active Substance: PACLITAXEL
     Indication: BREAST CANCER
     Dosage: 108 MILLIGRAM DAILY;
     Route: 042
     Dates: start: 20151028, end: 20160203

REACTIONS (4)
  - Vomiting [Unknown]
  - Malaise [Recovered/Resolved]
  - Diarrhoea [Unknown]
  - Nausea [Unknown]

NARRATIVE: CASE EVENT DATE: 20160212
